FAERS Safety Report 18126742 (Version 1)
Quarter: 2020Q3

REPORT INFORMATION
  Report Type: Spontaneous
  Country: US (occurrence: US)
  Receive Date: 20200809
  Receipt Date: 20200809
  Transmission Date: 20201103
  Serious: Yes (Hospitalization, Other)
  Sender: FDA-Public Use
  Company Number: US-AUROBINDO-AUR-APL-2019-078567

PATIENT
  Age: 44 Year
  Sex: Female

DRUGS (3)
  1. CHLORTALIDONE [Suspect]
     Active Substance: CHLORTHALIDONE
     Indication: PRODUCT USED FOR UNKNOWN INDICATION
     Dosage: 2.25 GRAM
     Route: 048
  2. LISINOPRIL TABLET [Suspect]
     Active Substance: LISINOPRIL
     Indication: PRODUCT USED FOR UNKNOWN INDICATION
     Dosage: UNKNOWN QUANTITY OF 40 MG TABLETS
     Route: 048
  3. ATENOLOL. [Suspect]
     Active Substance: ATENOLOL
     Indication: PRODUCT USED FOR UNKNOWN INDICATION
     Dosage: 4.5 GRAM
     Route: 048

REACTIONS (9)
  - Cardiotoxicity [Recovering/Resolving]
  - Renal failure [Recovered/Resolved]
  - Mental status changes [Recovered/Resolved]
  - Sinus bradycardia [Recovering/Resolving]
  - Acute respiratory distress syndrome [Recovering/Resolving]
  - Hypotension [Recovering/Resolving]
  - Overdose [Recovering/Resolving]
  - Coma [Recovering/Resolving]
  - Circulatory collapse [Recovering/Resolving]
